FAERS Safety Report 6386514-6 (Version None)
Quarter: 2009Q4

REPORT INFORMATION
  Report Type: 
  Country: None (occurrence: None)
  Receive Date: 20091002
  Receipt Date: 20090427
  Transmission Date: 20100525
  Serious: No
  Sender: FDA-Public Use
  Company Number: US-ASTRAZENECA-2009UW10532

PATIENT
  Age: 70 Year
  Sex: Female

DRUGS (4)
  1. ARIMIDEX [Suspect]
     Indication: BREAST CANCER
     Route: 048
  2. LOVAZA [Concomitant]
  3. CALCIUM [Concomitant]
  4. BORAGE OIL [Concomitant]

REACTIONS (3)
  - ARTHRITIS [None]
  - BONE DENSITY INCREASED [None]
  - HOT FLUSH [None]
